FAERS Safety Report 8213812-3 (Version None)
Quarter: 2012Q1

REPORT INFORMATION
  Report Type: 
  Country: None (occurrence: None)
  Receive Date: 20120316
  Receipt Date: 20120308
  Transmission Date: 20120608
  Serious: Yes (Other)
  Sender: FDA-Public Use
  Company Number: NL-BIOGENIDEC-2012BI008660

PATIENT
  Age: 30 Year
  Sex: Female
  Weight: 61 kg

DRUGS (2)
  1. TYSABRI [Suspect]
     Route: 042
  2. TYSABRI [Suspect]
     Indication: MULTIPLE SCLEROSIS
     Route: 042
     Dates: start: 20071106, end: 20100519

REACTIONS (1)
  - CERVICAL DYSPLASIA [None]
